FAERS Safety Report 4862172-4 (Version None)
Quarter: 2005Q4

REPORT INFORMATION
  Report Type: 
  Country: None (occurrence: None)
  Receive Date: 20051130
  Receipt Date: 20050713
  Transmission Date: 20060501
  Serious: Yes (Disabling)
  Sender: FDA-Public Use
  Company Number: 2005100666

PATIENT
  Age: 78 Year
  Sex: Female
  Weight: 58.9676 kg

DRUGS (9)
  1. CLINDAMYCIN PHOSPHATE [Suspect]
     Indication: VIRAL INFECTION
     Dosage: INTRAVENOUS
     Route: 042
     Dates: start: 20050602
  2. CLINDAMYCIN HYDROCHLORIDE [Suspect]
     Indication: VIRAL INFECTION
     Dosage: 1500 MG (1500 MG,3 IN 1 D),ORAL
     Route: 048
     Dates: end: 20050626
  3. FLAGYL [Suspect]
     Indication: ILL-DEFINED DISORDER
     Dates: start: 20050709
  4. CORTISONE ACETATE [Suspect]
     Indication: ILL-DEFINED DISORDER
     Dosage: INHALATION
     Route: 055
     Dates: end: 20050101
  5. XOPENEX [Suspect]
     Indication: ILL-DEFINED DISORDER
     Dosage: INHALATION
     Dates: end: 20050101
  6. HEPARIN [Concomitant]
  7. FLOVENT [Concomitant]
  8. ESTRACE [Concomitant]
  9. SYNTHROID [Concomitant]

REACTIONS (6)
  - ABDOMINAL PAIN [None]
  - DELIRIUM [None]
  - DIARRHOEA [None]
  - EATING DISORDER [None]
  - NAUSEA [None]
  - VOMITING [None]
